FAERS Safety Report 9668306 (Version 1)
Quarter: 2013Q4

REPORT INFORMATION
  Report Type: Spontaneous
  Country: US (occurrence: US)
  Receive Date: 20131104
  Receipt Date: 20131104
  Transmission Date: 20140711
  Serious: No
  Sender: FDA-Public Use
  Company Number: US-PFIZER INC-2013312797

PATIENT
  Age: 57 Year
  Sex: Male
  Weight: 90.7 kg

DRUGS (9)
  1. CELEBREX [Suspect]
     Dosage: 200 MG, 2X/DAY
     Route: 048
     Dates: start: 20121228
  2. LYRICA [Suspect]
     Indication: INTERVERTEBRAL DISC DEGENERATION
     Dosage: 75 MG, 2X/DAY
     Route: 048
     Dates: start: 20120927
  3. LYRICA [Suspect]
     Indication: CERVICAL RADICULOPATHY
  4. ALLEGRA [Suspect]
     Dosage: 1 DF, 2X/DAY
     Dates: start: 20121228
  5. MS CONTIN [Suspect]
     Indication: BACK PAIN
     Dosage: 30 MG, 3X/DAY
     Route: 048
     Dates: start: 20130603
  6. MS CONTIN [Suspect]
     Indication: INTERVERTEBRAL DISC DEGENERATION
  7. MSIR [Suspect]
     Indication: INTERVERTEBRAL DISC DEGENERATION
     Dosage: 15 MG, 3X/DAY PRN
     Route: 048
  8. MSIR [Suspect]
     Indication: CERVICAL RADICULOPATHY
  9. MSIR [Suspect]
     Indication: PAIN

REACTIONS (4)
  - Drug hypersensitivity [Unknown]
  - Somnolence [Unknown]
  - Constipation [Unknown]
  - Insomnia [Unknown]
